FAERS Safety Report 7465229-7 (Version None)
Quarter: 2011Q1

REPORT INFORMATION
  Report Type: 
  Country: None (occurrence: None)
  Receive Date: 20110302
  Receipt Date: 20100728
  Transmission Date: 20110831
  Serious: Yes (Hospitalization)
  Sender: FDA-Public Use
  Company Number: 163-21880-10072736

PATIENT
  Age: 71 Year
  Sex: Female
  Weight: 87.5442 kg

DRUGS (10)
  1. REVLIMID [Suspect]
     Indication: MULTIPLE MYELOMA
     Dosage: 10 MG, 1 IN 1 D, PO
     Route: 048
     Dates: start: 20100605
  2. VELCADE [Concomitant]
  3. FENTANYL [Concomitant]
  4. CRESTOR [Concomitant]
  5. OXYCODONE HCL [Concomitant]
  6. WARFARIN (WARFARIN) [Concomitant]
  7. LEVOTHYROXINE SODIUM [Concomitant]
  8. STOOL SOFTENER (DOCUSATE SODIUM) [Concomitant]
  9. CALCIUM (CALCIUM) [Concomitant]
  10. GENERLAC (LACTULOSE) [Concomitant]

REACTIONS (4)
  - BURNING SENSATION [None]
  - DYSPHAGIA [None]
  - CHEST PAIN [None]
  - FLATULENCE [None]
